FAERS Safety Report 5898711-4 (Version None)
Quarter: 2008Q3

REPORT INFORMATION
  Report Type: 
  Country: None (occurrence: None)
  Receive Date: 20080925
  Receipt Date: 20080506
  Transmission Date: 20090109
  Serious: No
  Sender: FDA-Public Use
  Company Number: A0725077A

PATIENT
  Age: 28 Year
  Sex: Male

DRUGS (2)
  1. WELLBUTRIN XL [Suspect]
     Dosage: 150MG PER DAY
     Route: 048
     Dates: start: 20080221, end: 20080224
  2. NO CONCURRENT MEDICATION [Concomitant]

REACTIONS (3)
  - AGITATION [None]
  - FEELING ABNORMAL [None]
  - INSOMNIA [None]
